FAERS Safety Report 4335170-7 (Version None)
Quarter: 2004Q2

REPORT INFORMATION
  Report Type: 
  Country: None (occurrence: None)
  Receive Date: 20040408
  Receipt Date: 20040224
  Transmission Date: 20050107
  Serious: Yes (Hospitalization)
  Sender: FDA-Public Use
  Company Number: GB-BRISTOL-MYERS SQUIBB COMPANY-12517579

PATIENT
  Age: 38 Year
  Sex: Female
  Weight: 121 kg

DRUGS (2)
  1. ARIPIPRAZOLE [Suspect]
     Indication: SCHIZOPHRENIA
     Dosage: AFTER 4 WEEKS ON DRUG, DOSE WAS INCREASED TO 30MG DATES NOT PROVIDED.
     Route: 048
     Dates: start: 20031101, end: 20040101
  2. CLOZAPINE [Concomitant]
     Dosage: PRIOR TO STARTING ARIPIPRAZOLE. DOSE WITHDRAWN IN NOV-03 RESTARTED IN 2004.
     Dates: end: 20031101

REACTIONS (3)
  - DRUG INEFFECTIVE [None]
  - SCHIZOPHRENIA [None]
  - WEIGHT DECREASED [None]
